FAERS Safety Report 16237913 (Version 1)
Quarter: 2019Q2

REPORT INFORMATION
  Report Type: Spontaneous
  Country: US (occurrence: US)
  Receive Date: 20190425
  Receipt Date: 20190425
  Transmission Date: 20190711
  Serious: No
  Sender: FDA-Public Use
  Company Number: US-MYLANLABS-2019M1032018

PATIENT
  Sex: Female

DRUGS (2)
  1. CIMETIDINE [Suspect]
     Active Substance: CIMETIDINE
     Indication: IRRITABLE BOWEL SYNDROME
  2. CIMETIDINE [Suspect]
     Active Substance: CIMETIDINE
     Indication: GASTRITIS
     Dosage: 800 MILLIGRAM, BID
     Route: 048

REACTIONS (3)
  - Product dose omission [Unknown]
  - Off label use [Unknown]
  - Product availability issue [Unknown]
